FAERS Safety Report 10438637 (Version 1)
Quarter: 2014Q3

REPORT INFORMATION
  Report Type: Spontaneous
  Country: US (occurrence: US)
  Receive Date: 20140908
  Receipt Date: 20140908
  Transmission Date: 20150326
  Serious: No
  Sender: FDA-Public Use
  Company Number: US-BRISTOL-MYERS SQUIBB COMPANY-19151869

PATIENT
  Age: 4 Year
  Sex: Female
  Weight: 15.87 kg

DRUGS (4)
  1. ABILIFY [Suspect]
     Active Substance: ARIPIPRAZOLE
  2. SIMETHICONE [Concomitant]
     Active Substance: DIMETHICONE\SILICON DIOXIDE\SIMETHICONE
     Indication: FLATULENCE
  3. CLONIDINE. [Concomitant]
     Active Substance: CLONIDINE
     Dosage: QUARTER OF A TAB IN THE MORNING, QUARTER OF A TAB AT DINNER, HALF A TAB AT BEDTIME
  4. MIRALAX [Concomitant]
     Active Substance: POLYETHYLENE GLYCOL 3350

REACTIONS (1)
  - Weight increased [Unknown]
